FAERS Safety Report 6127625-X (Version None)
Quarter: 2009Q1

REPORT INFORMATION
  Report Type: 
  Country: None (occurrence: None)
  Receive Date: 20090323
  Receipt Date: 20090312
  Transmission Date: 20090719
  Serious: No
  Sender: FDA-Public Use
  Company Number: US-ROCHE-584477

PATIENT
  Sex: Female

DRUGS (2)
  1. ISOTRETINOIN [Suspect]
     Indication: DRUG USE FOR UNKNOWN INDICATION
     Dosage: THE PATIENT WAS DISPENSED ACCUTANE 40 MG CAPSULE ON 13 JUNE 2008 AND 1 AUGUST 2008
     Route: 065
     Dates: end: 20080810
  2. ORAL CONTRACEPTION [Concomitant]

REACTIONS (2)
  - ABORTION INDUCED [None]
  - NO ADVERSE EVENT [None]
